FAERS Safety Report 13735346 (Version 5)
Quarter: 2017Q3

REPORT INFORMATION
  Report Type: Spontaneous
  Country: GB (occurrence: GB)
  Receive Date: 20170710
  Receipt Date: 20170828
  Transmission Date: 20171127
  Serious: Yes (Hospitalization, Other)
  Sender: FDA-Public Use
  Company Number: PHFR2017GB005313

PATIENT
  Age: 73 Year
  Sex: Female
  Weight: 75 kg

DRUGS (2)
  1. IMATINIB [Suspect]
     Active Substance: IMATINIB
     Indication: CHRONIC MYELOID LEUKAEMIA
     Dosage: 400 MG
     Route: 065
     Dates: start: 20170110, end: 20170308
  2. IMATINIB [Suspect]
     Active Substance: IMATINIB
     Indication: SYSTEMIC SCLERODERMA

REACTIONS (10)
  - Cerebrovascular accident [Unknown]
  - Meningioma [Unknown]
  - Anaemia [Unknown]
  - Seizure [Unknown]
  - Benign neoplasm [Unknown]
  - Thrombocytopenia [Unknown]
  - Bone marrow failure [Recovering/Resolving]
  - Brain neoplasm [Unknown]
  - Second primary malignancy [Unknown]
  - Pancytopenia [Unknown]

NARRATIVE: CASE EVENT DATE: 20170307
